FAERS Safety Report 16458426 (Version 1)
Quarter: 2019Q2

REPORT INFORMATION
  Report Type: Spontaneous
  Country: US (occurrence: US)
  Receive Date: 20190620
  Receipt Date: 20190620
  Transmission Date: 20190711
  Serious: No
  Sender: FDA-Public Use
  Company Number: US-THERAPEUTICSMD-2019TMD00376

PATIENT
  Age: 66 Year
  Sex: Female
  Weight: 81.63 kg

DRUGS (49)
  1. PROGESTERONE. [Concomitant]
     Active Substance: PROGESTERONE
     Dosage: 100 MG, 1X/DAY
  2. SPIRONOLACTONE. [Concomitant]
     Active Substance: SPIRONOLACTONE
     Dosage: 25 MG, 1X/DAY
  3. POTASSIUM [Concomitant]
     Active Substance: POTASSIUM
     Dosage: 10 MEQ, 1X/DAY
  4. MONTELUKAST SODIUM. [Concomitant]
     Active Substance: MONTELUKAST SODIUM
     Dosage: 10 MG, 1X/DAY
  5. CHOLIC GARLIC [Concomitant]
     Dosage: 1800 MG, 1X/DAY
  6. PYCNOGENOL [Concomitant]
     Active Substance: DIETARY SUPPLEMENT
     Dosage: 60 MG, 2X/DAY
  7. MAGNESIUM GLYCINATE [Concomitant]
     Active Substance: MAGNESIUM GLYCINATE
     Dosage: 400 MG, 1X/DAY
  8. THEONINE [Concomitant]
     Dosage: 200 MG, 1X/DAY
  9. ELESTRIN [Concomitant]
     Active Substance: ESTRADIOL
     Dosage: 2 DOSAGE UNITS, 1X/DAY
     Route: 061
  10. ALPHA LIPOIC ACID [Concomitant]
     Active Substance: .ALPHA.-LIPOIC ACID
     Dosage: 600 MG, 1X/DAY
  11. EYE HEALTH (COMPARE TO OCUVITE) [Concomitant]
  12. ZANTAC [Concomitant]
     Active Substance: RANITIDINE HYDROCHLORIDE
     Dosage: 300 MG, 1X/DAY
  13. SERRAPEPTASE [Concomitant]
     Active Substance: SERRAPEPTASE
     Dosage: 120000 U, 1X/DAY
  14. IMVEXXY [Suspect]
     Active Substance: ESTRADIOL
     Indication: UTERINE PAIN
     Dosage: 10 ?G, 1X/DAY BEFORE BED
     Route: 067
     Dates: start: 20190213, end: 20190224
  15. LASIX [Concomitant]
     Active Substance: FUROSEMIDE
     Dosage: 40 MG, 1X/DAY
  16. LANOXIN [Concomitant]
     Active Substance: DIGOXIN
     Dosage: 0.25 MG, 1X/DAY
  17. SUPER BIO-CURCUMIN [Concomitant]
  18. GLUCOSAMINE CHONDROITIN [Concomitant]
     Active Substance: CHONDROITIN SULFATE (BOVINE)\GLUCOSAMINE HYDROCHLORIDE
     Dosage: 1500 MG, 1X/DAY
  19. ASPIRIN. [Concomitant]
     Active Substance: ASPIRIN
     Dosage: 81 MG, 1X/DAY
  20. TESTOSTERONE. [Concomitant]
     Active Substance: TESTOSTERONE
     Dosage: 0.25 G, 1X/DAY
     Route: 061
  21. VASCEPA [Concomitant]
     Active Substance: ICOSAPENT ETHYL
     Dosage: 1000 MG, 4X/DAY
  22. DR. OHHIRA^S PROBIOTICS PRO, PREBIOTIC CULTURES [Concomitant]
  23. CHROMIUM PICOLINATE [Concomitant]
     Active Substance: CHROMIUM PICOLINATE
     Dosage: 1000 ?G, 1X/DAY
  24. EHB STOOL SOFTENER DOCUSATE SODIUM [Concomitant]
     Dosage: 1250 MG, 1X/DAY
  25. VITAMIN C [Concomitant]
     Active Substance: ASCORBIC ACID
     Dosage: 1000 MG, 1X/DAY
  26. MAGNESIUM CITRATE. [Concomitant]
     Active Substance: MAGNESIUM CITRATE
     Dosage: 400 MG, 1X/DAY
  27. ESTRADIOL VAGINAL CREAM [Concomitant]
     Active Substance: ESTRADIOL
  28. COREG CR [Concomitant]
     Active Substance: CARVEDILOL PHOSPHATE
     Dosage: 40 MG, 1X/DAY
  29. LANOXIN [Concomitant]
     Active Substance: DIGOXIN
     Dosage: 0.125 MG, 2X/WEEK (MONDAY AND THURSDAY)
  30. ALLEGRA [Concomitant]
     Active Substance: FEXOFENADINE HYDROCHLORIDE
     Dosage: 180 MG, 1X/DAY
  31. ZINC. [Concomitant]
     Active Substance: ZINC
  32. BIOTIN 5000 [Concomitant]
  33. IMVEXXY [Suspect]
     Active Substance: ESTRADIOL
     Dosage: 10 ?G, EVERY 48 HOURS
     Route: 067
     Dates: start: 20190226
  34. WELLBUTRIN [Concomitant]
     Active Substance: BUPROPION HYDROCHLORIDE
     Dosage: 150 MG, 2X/DAY
  35. AMBIEN [Concomitant]
     Active Substance: ZOLPIDEM TARTRATE
     Dosage: 2.5 MG, 1X/DAY
  36. DHEA [Concomitant]
     Active Substance: PRASTERONE
     Dosage: 25 MG, 2X/WEEK (MONDAY AND THURSDAY)
  37. PODIAPN [Concomitant]
     Active Substance: DIETARY SUPPLEMENT
  38. SYNTHROID [Concomitant]
     Active Substance: LEVOTHYROXINE SODIUM
     Dosage: 0.1 MG, 1X/WEEK (ON FRIDAY)
  39. L-CARNITINE [Concomitant]
     Active Substance: LEVOCARNITINE
     Dosage: 500 MG, 1X/DAY
  40. CO-ENZYME B COMPLEX [Concomitant]
     Dosage: UNK, 1X/DAY
  41. UBIQUINOL [Concomitant]
     Active Substance: UBIQUINOL
     Dosage: 200 MG, 1X/DAY
  42. B BRAIN PLEX [Concomitant]
  43. SYNTHROID [Concomitant]
     Active Substance: LEVOTHYROXINE SODIUM
     Dosage: 0.2 MG, 1X/DAY
  44. COZAAR [Concomitant]
     Active Substance: LOSARTAN POTASSIUM
     Dosage: 50 MG, 2X/DAY
  45. TRICOR [Concomitant]
     Active Substance: FENOFIBRATE
     Dosage: 145 MG, 1X/DAY
  46. OMEPRAZOLE. [Concomitant]
     Active Substance: OMEPRAZOLE
     Dosage: 40 MG, 1X/DAY
  47. VITAMIN D3 [Concomitant]
     Active Substance: CHOLECALCIFEROL
     Dosage: 5000 IU, 1X/DAY
  48. 5 HTP [OXITRIPTAN] [Concomitant]
     Active Substance: OXITRIPTAN
     Dosage: 100 MG, 1X/DAY
  49. NATTOKINASE [Concomitant]
     Active Substance: NATTOKINASE

REACTIONS (4)
  - Vulvovaginal dryness [Not Recovered/Not Resolved]
  - Drug ineffective [Not Recovered/Not Resolved]
  - Uterine pain [Not Recovered/Not Resolved]
  - Off label use [Not Recovered/Not Resolved]

NARRATIVE: CASE EVENT DATE: 2019
